FAERS Safety Report 21121211 (Version 1)
Quarter: 2022Q3

REPORT INFORMATION
  Report Type: Spontaneous
  Country: US (occurrence: US)
  Receive Date: 20220722
  Receipt Date: 20220722
  Transmission Date: 20221026
  Serious: No
  Sender: FDA-Public Use
  Company Number: US-PFIZER INC-202200994835

PATIENT
  Sex: Male

DRUGS (2)
  1. LATANOPROST [Suspect]
     Active Substance: LATANOPROST
     Dosage: UNK, DAILY
     Route: 047
  2. XALATAN [Suspect]
     Active Substance: LATANOPROST
     Indication: Eye disorder
     Dosage: UNK, DAILY
     Route: 047

REACTIONS (4)
  - Tremor [Unknown]
  - Product dose omission issue [Unknown]
  - Poor quality product administered [Unknown]
  - Product complaint [Unknown]
